FAERS Safety Report 24615021 (Version 1)
Quarter: 2024Q4

REPORT INFORMATION
  Report Type: Spontaneous
  Country: BE (occurrence: BE)
  Receive Date: 20241113
  Receipt Date: 20241113
  Transmission Date: 20250115
  Serious: Yes (Other)
  Sender: PURDUE
  Company Number: BE-NAPPMUNDI-GBR-2024-0121136

PATIENT
  Age: 20 Year
  Sex: Female

DRUGS (4)
  1. METHYLPHENIDATE HYDROCHLORIDE [Suspect]
     Active Substance: METHYLPHENIDATE HYDROCHLORIDE
     Indication: Attention deficit hyperactivity disorder
     Dosage: UNK
     Route: 065
  2. METHYLPHENIDATE HYDROCHLORIDE [Suspect]
     Active Substance: METHYLPHENIDATE HYDROCHLORIDE
     Indication: Attention deficit hyperactivity disorder
     Dosage: UNK
     Route: 065
  3. DIENOGEST\ETHINYL ESTRADIOL [Interacting]
     Active Substance: DIENOGEST\ETHINYL ESTRADIOL
     Indication: Hormonal contraception
     Dosage: ETHINYLESTRADIOL 0.03 MG + DIENOGEST 2 MG (EE/DNG)
     Route: 065
  4. QUETIAPINE [Concomitant]
     Active Substance: QUETIAPINE
     Indication: Insomnia
     Dosage: UNK
     Route: 065

REACTIONS (2)
  - Uterine haemorrhage [Recovered/Resolved]
  - Drug interaction [Unknown]
